FAERS Safety Report 18906763 (Version 1)
Quarter: 2021Q1

REPORT INFORMATION
  Report Type: Spontaneous
  Country: US (occurrence: US)
  Receive Date: 20210218
  Receipt Date: 20210218
  Transmission Date: 20210420
  Serious: Yes (Other)
  Sender: FDA-Public Use
  Company Number: US-CIPLA LTD.-2021US00194

PATIENT

DRUGS (3)
  1. AMLODIPINE [Suspect]
     Active Substance: AMLODIPINE BESYLATE
     Indication: BLOOD PRESSURE ABNORMAL
     Dosage: UNK
     Route: 065
  2. LUPRON [Concomitant]
     Active Substance: LEUPROLIDE ACETATE
     Indication: PRODUCT USED FOR UNKNOWN INDICATION
     Dosage: UNK
     Route: 065
  3. FIRMAGON [Concomitant]
     Active Substance: DEGARELIX ACETATE
     Indication: PROSTATE CANCER STAGE IV
     Dosage: UNK, EVERY 28 DAYS
     Route: 065

REACTIONS (2)
  - Swelling face [Unknown]
  - Angioedema [Unknown]
